FAERS Safety Report 6425130-4 (Version None)
Quarter: 2009Q4

REPORT INFORMATION
  Report Type: 
  Country: None (occurrence: None)
  Receive Date: 20091103
  Receipt Date: 20091019
  Transmission Date: 20100525
  Serious: Yes (Disabling, Other)
  Sender: FDA-Public Use
  Company Number: CA-BAYER-200915684BCC

PATIENT
  Age: 55 Year
  Sex: Male
  Weight: 82 kg

DRUGS (1)
  1. LOTRIDERM CREAM [Suspect]
     Indication: DRUG USE FOR UNKNOWN INDICATION
     Route: 065

REACTIONS (6)
  - ADJUSTMENT DISORDER [None]
  - AGGRESSION [None]
  - ANTISOCIAL BEHAVIOUR [None]
  - COGNITIVE DISORDER [None]
  - FRONTOTEMPORAL DEMENTIA [None]
  - PERSONALITY CHANGE [None]
